FAERS Safety Report 7945990-5 (Version None)
Quarter: 2011Q4

REPORT INFORMATION
  Report Type: 
  Country: None (occurrence: None)
  Receive Date: 20111123
  Receipt Date: 20111116
  Transmission Date: 20120403
  Serious: Yes (Hospitalization)
  Sender: FDA-Public Use
  Company Number: 2011SP041978

PATIENT
  Age: 76 Year
  Sex: Male
  Weight: 60 kg

DRUGS (17)
  1. LASIX [Concomitant]
  2. TEMOZOLOMIDE [Suspect]
     Indication: GLIOBLASTOMA
     Dosage: 150 MG/M2;PO ; 150 MG/M2;PO ; 150 MG/M2;PO ; 150 MG/M2;PO
     Route: 048
     Dates: start: 20110715
  3. TEMOZOLOMIDE [Suspect]
     Indication: GLIOBLASTOMA
     Dosage: 150 MG/M2;PO ; 150 MG/M2;PO ; 150 MG/M2;PO ; 150 MG/M2;PO
     Route: 048
     Dates: end: 20110816
  4. TEMOZOLOMIDE [Suspect]
     Indication: GLIOBLASTOMA
     Dosage: 150 MG/M2;PO ; 150 MG/M2;PO ; 150 MG/M2;PO ; 150 MG/M2;PO
     Route: 048
     Dates: start: 20111029
  5. TEMOZOLOMIDE [Suspect]
     Indication: GLIOBLASTOMA
     Dosage: 150 MG/M2;PO ; 150 MG/M2;PO ; 150 MG/M2;PO ; 150 MG/M2;PO
     Route: 048
     Dates: start: 20110909, end: 20110913
  6. DILTIAZEM HCL [Concomitant]
  7. FLUTICASONE PROPIONATE/SALMETEROL [Concomitant]
  8. POTASSIUM CHLORIDE [Concomitant]
  9. MEDROL [Concomitant]
  10. BEVACIZUMAB (BEVACIZUMAB) [Suspect]
     Indication: GLIOBLASTOMA
     Dates: start: 20111104
  11. BEVACIZUMAB (BEVACIZUMAB) [Suspect]
     Indication: GLIOBLASTOMA
     Dates: start: 20110909, end: 20110923
  12. BEVACIZUMAB (BEVACIZUMAB) [Suspect]
     Indication: GLIOBLASTOMA
     Dates: start: 20110715
  13. BEVACIZUMAB (BEVACIZUMAB) [Suspect]
     Indication: GLIOBLASTOMA
     Dates: end: 20110826
  14. PRAVASTATIN [Concomitant]
  15. LANSOPRAZOLE [Concomitant]
  16. LAMICTAL [Concomitant]
  17. DIGOXIN [Concomitant]

REACTIONS (4)
  - GENERAL PHYSICAL HEALTH DETERIORATION [None]
  - PYREXIA [None]
  - SUPERINFECTION [None]
  - BRONCHITIS [None]
